FAERS Safety Report 23138661 (Version 1)
Quarter: 2023Q4

REPORT INFORMATION
  Report Type: Spontaneous
  Country: IT (occurrence: IT)
  Receive Date: 20231102
  Receipt Date: 20231102
  Transmission Date: 20240110
  Serious: Yes (Hospitalization, Other)
  Sender: FDA-Public Use
  Company Number: None

PATIENT
  Age: 44 Year
  Sex: Female

DRUGS (2)
  1. OLANZAPINE [Suspect]
     Active Substance: OLANZAPINE
     Indication: Product used for unknown indication
     Dosage: INTAKE UNSPECIFIED QUANTITY, INTENTIONAL OVERDOSE
     Route: 048
     Dates: start: 20231010, end: 20231010
  2. VALPROATE SODIUM [Suspect]
     Active Substance: VALPROATE SODIUM
     Indication: Product used for unknown indication
     Dosage: INTAKE UNSPECIFIED QUANTITY, INTENTIONAL OVERDOSE
     Route: 048
     Dates: start: 20231010, end: 20231010

REACTIONS (3)
  - Drug abuse [Unknown]
  - Agitation [Not Recovered/Not Resolved]
  - Intentional overdose [Not Recovered/Not Resolved]

NARRATIVE: CASE EVENT DATE: 20231010
